FAERS Safety Report 6126304-2 (Version None)
Quarter: 2009Q1

REPORT INFORMATION
  Report Type: 
  Country: None (occurrence: None)
  Receive Date: 20090320
  Receipt Date: 20090311
  Transmission Date: 20090719
  Serious: Yes (Other)
  Sender: FDA-Public Use
  Company Number: JP-MERCK-0903USA02678

PATIENT
  Age: 74 Year
  Sex: Male

DRUGS (6)
  1. PEPCID [Suspect]
     Route: 041
  2. PACLITAXEL [Suspect]
     Indication: LUNG ADENOCARCINOMA
     Route: 065
  3. DECADRON PHOSPHATE [Suspect]
     Route: 041
  4. GRANISETRON [Concomitant]
     Route: 041
  5. CHLORPHENIRAMINE MALEATE [Concomitant]
     Route: 041
  6. CARBOPLATIN [Suspect]
     Indication: LUNG ADENOCARCINOMA
     Route: 065

REACTIONS (8)
  - BLOOD PRESSURE DECREASED [None]
  - HEART RATE INCREASED [None]
  - INFLAMMATION [None]
  - RECTAL FISSURE [None]
  - RECTAL PERFORATION [None]
  - RENAL FAILURE ACUTE [None]
  - SEPSIS [None]
  - WHITE BLOOD CELL COUNT DECREASED [None]
